FAERS Safety Report 13102707 (Version 1)
Quarter: 2017Q1

REPORT INFORMATION
  Report Type: Spontaneous
  Country: US (occurrence: US)
  Receive Date: 20170110
  Receipt Date: 20170110
  Transmission Date: 20170428
  Serious: Yes (Other)
  Sender: FDA-Public Use
  Company Number: US-ALLERGAN-1700597US

PATIENT
  Age: 27 Year
  Sex: Female

DRUGS (2)
  1. HYDROCORTISONE. [Concomitant]
     Active Substance: HYDROCORTISONE
     Indication: ADRENOGENITAL SYNDROME
     Dosage: UNK
  2. PROGESTERONE UNK [Suspect]
     Active Substance: PROGESTERONE
     Indication: ADRENOGENITAL SYNDROME
     Dosage: UNK

REACTIONS (1)
  - Uterine haemorrhage [Unknown]
